FAERS Safety Report 5067668-0 (Version None)
Quarter: 2006Q3

REPORT INFORMATION
  Report Type: 
  Country: None (occurrence: None)
  Receive Date: 20060727
  Receipt Date: 20060718
  Transmission Date: 20061208
  Serious: Yes (Life-Threatening, Hospitalization)
  Sender: FDA-Public Use
  Company Number: URSO-2006-002-F-UP 1

PATIENT
  Age: 6 Year
  Sex: Male
  Weight: 20.8655 kg

DRUGS (1)
  1. URSO 250 [Suspect]
     Indication: HEPATITIS
     Dosage: 250 MG BID
     Dates: start: 20060330, end: 20060413

REACTIONS (6)
  - PLATELET COUNT DECREASED [None]
  - PRURITUS [None]
  - RASH ERYTHEMATOUS [None]
  - RED BLOOD CELL COUNT DECREASED [None]
  - RETICULOCYTE COUNT DECREASED [None]
  - WHITE BLOOD CELL COUNT DECREASED [None]
